FAERS Safety Report 9277020 (Version 2)
Quarter: 2013Q2

REPORT INFORMATION
  Report Type: Spontaneous
  Country: US (occurrence: US)
  Receive Date: 20130507
  Receipt Date: 20130507
  Transmission Date: 20140414
  Serious: Yes (Hospitalization, Other)
  Sender: FDA-Public Use
  Company Number: CHPA2012US025837

PATIENT
  Age: 62 Year
  Sex: Male

DRUGS (8)
  1. EXCEDRIN EXTRA STRENGTH [Suspect]
     Indication: SINUS HEADACHE
     Dosage: 2 DF, QD
     Route: 048
     Dates: start: 1977
  2. FUROSEMIDE TABLETS USP [Suspect]
     Indication: FLUID RETENTION
     Dosage: 40 MG, BID
     Dates: start: 1977
  3. LOPRESSOR [Suspect]
     Indication: HYPERTENSION
     Dosage: 25 MG, BID
     Dates: start: 1977
  4. ERYTHROMYCIN [Concomitant]
     Dosage: 250 MG, TID
     Route: 048
     Dates: start: 20121215, end: 20121217
  5. DOCOSAHEXANOIC ACID [Concomitant]
     Dosage: 1000 MG, BID
     Route: 048
  6. POTASSIUM CHLORIDE [Concomitant]
     Indication: PROPHYLAXIS
     Dosage: 1 DF, UNK
     Route: 048
     Dates: start: 2002
  7. BENADRYL /OLD FORM/ [Concomitant]
     Indication: SLEEP DISORDER
     Dosage: UNK, UNK
  8. MULTIVITAMIN//VITAMINS NOS [Concomitant]
     Indication: SUPPLEMENTATION THERAPY
     Dosage: UNK, UNK

REACTIONS (11)
  - Pneumonia [Recovered/Resolved]
  - Type 2 diabetes mellitus [Not Recovered/Not Resolved]
  - Familial tremor [Not Recovered/Not Resolved]
  - Cholelithiasis [Not Recovered/Not Resolved]
  - Pyrexia [Unknown]
  - Fungal infection [Unknown]
  - Abdominal pain upper [Recovered/Resolved]
  - Somnolence [Recovered/Resolved]
  - Arthritis [Not Recovered/Not Resolved]
  - Expired drug administered [Not Recovered/Not Resolved]
  - Incorrect drug administration duration [Unknown]
